FAERS Safety Report 14201268 (Version 3)
Quarter: 2017Q4

REPORT INFORMATION
  Report Type: Spontaneous
  Country: US (occurrence: US)
  Receive Date: 20171117
  Receipt Date: 20171219
  Transmission Date: 20180321
  Serious: No
  Sender: FDA-Public Use
  Company Number: US-PFIZER INC-2017077443

PATIENT
  Age: 79 Year
  Sex: Female

DRUGS (18)
  1. CAPTOPRIL. [Concomitant]
     Active Substance: CAPTOPRIL
     Dosage: UNK
  2. AMARYL [Concomitant]
     Active Substance: GLIMEPIRIDE
     Dosage: UNK
  3. IBRANCE [Suspect]
     Active Substance: PALBOCICLIB
     Dosage: 100 MG, CYCLIC [FOR 21 DAYS/TAKEN WITH FOOD DAILY ON DAYS 1 -21 EVERY 28 DAYS]
     Route: 048
     Dates: start: 20171205
  4. CALCIUM [Concomitant]
     Active Substance: CALCIUM
     Dosage: UNK
  5. LYRICA [Concomitant]
     Active Substance: PREGABALIN
     Dosage: UNK
  6. VITAMIN C [Concomitant]
     Active Substance: ASCORBIC ACID
     Dosage: UNK
  7. LIPITOR [Concomitant]
     Active Substance: ATORVASTATIN CALCIUM
     Dosage: UNK
  8. LEVEMIR [Concomitant]
     Active Substance: INSULIN DETEMIR
     Dosage: UNK
  9. IBRANCE [Suspect]
     Active Substance: PALBOCICLIB
     Indication: BREAST CANCER
     Dosage: 100 MG, CYCLIC [FOR 21 DAYS/TAKEN WITH FOOD DAILY ON DAYS 1 -21 EVERY 28 DAYS]
     Route: 048
     Dates: start: 20170203, end: 20170224
  10. TYLENOL [Concomitant]
     Active Substance: ACETAMINOPHEN
     Dosage: UNK
  11. IBRANCE [Suspect]
     Active Substance: PALBOCICLIB
     Dosage: 100 MG, CYCLIC [FOR 21 DAYS/TAKEN WITH FOOD DAILY ON DAYS 1 -21 EVERY 28 DAYS]
     Route: 048
     Dates: start: 20170223, end: 20170316
  12. IBRANCE [Suspect]
     Active Substance: PALBOCICLIB
     Dosage: 100 MG, CYCLIC [FOR 21 DAYS/TAKEN WITH FOOD DAILY ON DAYS 1 -21 EVERY 28 DAYS]
     Route: 048
     Dates: start: 20171016, end: 20171106
  13. HCTZ [Concomitant]
     Active Substance: HYDROCHLOROTHIAZIDE
     Dosage: UNK
  14. SYNTHROID [Concomitant]
     Active Substance: LEVOTHYROXINE SODIUM
     Dosage: UNK
  15. GLUCOPHAGE [Concomitant]
     Active Substance: METFORMIN HYDROCHLORIDE
     Dosage: UNK
  16. IBRANCE [Suspect]
     Active Substance: PALBOCICLIB
     Dosage: 100 MG, CYCLIC [FOR 21 DAYS/TAKEN WITH FOOD DAILY ON DAYS 1 -21 EVERY 28 DAYS]
     Route: 048
     Dates: start: 20170623, end: 20170714
  17. LOVAZA [Concomitant]
     Active Substance: OMEGA-3-ACID ETHYL ESTERS
     Dosage: UNK
  18. IBRANCE [Suspect]
     Active Substance: PALBOCICLIB
     Dosage: 100 MG, CYCLIC [FOR 21 DAYS/TAKEN WITH FOOD DAILY ON DAYS 1 -21 EVERY 28 DAYS]
     Route: 048
     Dates: start: 20170822, end: 20170912

REACTIONS (2)
  - Headache [Unknown]
  - Hypoacusis [Unknown]

NARRATIVE: CASE EVENT DATE: 2017
